FAERS Safety Report 9858878 (Version 2)
Quarter: 2014Q1

REPORT INFORMATION
  Report Type: Spontaneous
  Country: ES (occurrence: ES)
  Receive Date: 20140131
  Receipt Date: 20140131
  Transmission Date: 20141002
  Serious: Yes (Other)
  Sender: FDA-Public Use
  Company Number: ES-TEVA-437945ISR

PATIENT
  Age: 57 Year
  Sex: Female

DRUGS (7)
  1. VENLAFAXINE [Suspect]
     Route: 065
  2. CITALOPRAM [Suspect]
     Route: 065
  3. ESCITALOPRAM [Suspect]
     Route: 065
  4. OLANZAPINE [Suspect]
     Route: 065
  5. HALOPERIDOL [Suspect]
     Route: 065
  6. ENALAPRIL [Suspect]
     Route: 065
  7. UNSPECIFIED THIAZIDE [Suspect]

REACTIONS (1)
  - Hyponatraemia [Unknown]
